FAERS Safety Report 5016571-0 (Version None)
Quarter: 2006Q2

REPORT INFORMATION
  Report Type: 
  Country: None (occurrence: None)
  Receive Date: 20060602
  Receipt Date: 20060516
  Transmission Date: 20061013
  Serious: Yes (Other)
  Sender: FDA-Public Use
  Company Number: PHEH2006US06409

PATIENT
  Sex: Female

DRUGS (2)
  1. ELIDEL [Suspect]
     Route: 061
  2. PROTOPIC [Suspect]
     Indication: VITILIGO

REACTIONS (1)
  - BREAST CANCER [None]
